FAERS Safety Report 7884110-2 (Version None)
Quarter: 2011Q4

REPORT INFORMATION
  Report Type: 
  Country: None (occurrence: None)
  Receive Date: 20111102
  Receipt Date: 20111026
  Transmission Date: 20120403
  Serious: Yes (Hospitalization, Other)
  Sender: FDA-Public Use
  Company Number: BR-SANOFI-AVENTIS-2011SA070953

PATIENT
  Age: 86 Year
  Sex: Male
  Weight: 86 kg

DRUGS (2)
  1. CLIKSTAR [Concomitant]
     Indication: DEVICE THERAPY
  2. LANTUS [Suspect]
     Dosage: FORM: CARTRIDGEDOSE REPORTED AS 20 TO 34 IU (ACCORDING TO GLYCEMIA)
     Route: 065
     Dates: start: 20080501

REACTIONS (4)
  - FEELING ABNORMAL [None]
  - GASTROINTESTINAL CARCINOMA [None]
  - INTESTINAL HAEMORRHAGE [None]
  - BLOOD GLUCOSE FLUCTUATION [None]
